FAERS Safety Report 8176542-2 (Version None)
Quarter: 2012Q1

REPORT INFORMATION
  Report Type: 
  Country: None (occurrence: None)
  Receive Date: 20120301
  Receipt Date: 20120221
  Transmission Date: 20120608
  Serious: Yes (Hospitalization, Other)
  Sender: FDA-Public Use
  Company Number: US-JNJFOC-20120112515

PATIENT
  Sex: Male
  Weight: 127 kg

DRUGS (21)
  1. LASIX [Concomitant]
  2. FLONASE [Concomitant]
     Indication: MULTIPLE ALLERGIES
     Route: 045
  3. POTASSIUM CHLORIDE [Concomitant]
  4. CLINDAMYCIN [Concomitant]
     Indication: CELLULITIS
     Dates: start: 20120117, end: 20120128
  5. VALSARTAN [Concomitant]
     Indication: CARDIAC FAILURE CONGESTIVE
     Route: 048
  6. POTASSIUM CHLORIDE [Concomitant]
  7. FLONASE [Concomitant]
     Indication: ASTHMA
     Route: 045
  8. DITROPAN [Concomitant]
     Indication: AUTOMATIC BLADDER
     Dates: start: 20120113, end: 20120128
  9. LISINOPRIL [Concomitant]
     Indication: HYPERTENSION
     Route: 048
  10. AMLODIPINE [Concomitant]
     Indication: CARDIAC FAILURE CONGESTIVE
  11. VALSARTAN [Concomitant]
     Indication: HYPERTENSION
     Route: 048
  12. FLONASE [Concomitant]
     Indication: CHRONIC OBSTRUCTIVE PULMONARY DISEASE
     Route: 045
  13. LISINOPRIL [Concomitant]
     Indication: CARDIAC FAILURE CONGESTIVE
     Route: 048
  14. FLOVENT [Concomitant]
     Indication: CHRONIC OBSTRUCTIVE PULMONARY DISEASE
  15. FLOVENT [Concomitant]
     Indication: ASTHMA
  16. MS CONTIN [Concomitant]
  17. XARELTO [Suspect]
     Indication: THROMBOSIS PROPHYLAXIS
     Route: 048
     Dates: start: 20111219, end: 20120124
  18. ALBUTEROL [Concomitant]
     Indication: ASTHMA
     Route: 055
  19. SPIRIVA [Concomitant]
     Indication: CHRONIC OBSTRUCTIVE PULMONARY DISEASE
     Route: 055
  20. HYDROMORPHONE HCL [Concomitant]
     Indication: PAIN
  21. AMLODIPINE [Concomitant]
     Indication: HYPERTENSION

REACTIONS (5)
  - RENAL FAILURE ACUTE [None]
  - CELLULITIS [None]
  - HYPOTENSION [None]
  - PROTHROMBIN TIME PROLONGED [None]
  - INTERNATIONAL NORMALISED RATIO INCREASED [None]
